FAERS Safety Report 7804799-3 (Version None)
Quarter: 2011Q4

REPORT INFORMATION
  Report Type: 
  Country: None (occurrence: None)
  Receive Date: 20111010
  Receipt Date: 20111004
  Transmission Date: 20120403
  Serious: Yes (Hospitalization)
  Sender: FDA-Public Use
  Company Number: US-VERTEX PHARMACEUTICALS INC.-AE-2011-001999

PATIENT
  Sex: Female

DRUGS (1)
  1. INCIVEK [Suspect]
     Indication: HEPATITIS C
     Dates: start: 20110901

REACTIONS (1)
  - CARDIAC DISORDER [None]
